FAERS Safety Report 23869986 (Version 1)
Quarter: 2024Q2

REPORT INFORMATION
  Report Type: Spontaneous
  Country: US (occurrence: US)
  Receive Date: 20240517
  Receipt Date: 20240517
  Transmission Date: 20240715
  Serious: No
  Sender: FDA-Public Use
  Company Number: US-SA-SAC20240513000553

PATIENT
  Sex: Male
  Weight: 95 kg

DRUGS (9)
  1. DUPIXENT [Suspect]
     Active Substance: DUPILUMAB
     Indication: Dermatitis atopic
     Dosage: 300 MG, QOW
     Route: 058
     Dates: start: 201911
  2. ALLEGRA D-12 HOUR [Concomitant]
     Active Substance: FEXOFENADINE HYDROCHLORIDE\PSEUDOEPHEDRINE HYDROCHLORIDE
  3. ZYRTEC [Concomitant]
     Active Substance: CETIRIZINE HYDROCHLORIDE
  4. ENTYVIO [Concomitant]
     Active Substance: VEDOLIZUMAB
  5. CLOBETASOL [Concomitant]
     Active Substance: CLOBETASOL
  6. FISH OIL [Concomitant]
     Active Substance: FISH OIL
  7. TACROLIMUS [Concomitant]
     Active Substance: TACROLIMUS
  8. CELECOXIB [Concomitant]
     Active Substance: CELECOXIB
  9. QUETIAPINE FUMARATE [Concomitant]
     Active Substance: QUETIAPINE FUMARATE

REACTIONS (1)
  - Pruritus [Unknown]
